FAERS Safety Report 7239325-3 (Version None)
Quarter: 2011Q1

REPORT INFORMATION
  Report Type: 
  Country: None (occurrence: None)
  Receive Date: 20110121
  Receipt Date: 20110111
  Transmission Date: 20110831
  Serious: Yes (Other)
  Sender: FDA-Public Use
  Company Number: CH-AMGEN-CHESP2010000714

PATIENT

DRUGS (2)
  1. CELEBREX [Concomitant]
     Dosage: DOSE AND FREQUENCY UNKNOWN
     Route: 048
  2. ENBREL [Suspect]
     Indication: RHEUMATOID ARTHRITIS
     Dosage: DOSE AND FREQUENCY UNKNOWN
     Route: 058
     Dates: start: 20080606, end: 20100701

REACTIONS (1)
  - ORAL LICHEN PLANUS [None]
